FAERS Safety Report 11582700 (Version 1)
Quarter: 2015Q4

REPORT INFORMATION
  Report Type: Spontaneous
  Country: US (occurrence: US)
  Receive Date: 20151001
  Receipt Date: 20151001
  Transmission Date: 20160304
  Serious: No
  Sender: FDA-Public Use
  Company Number: US-ROCHE-686655

PATIENT
  Sex: Male

DRUGS (2)
  1. HYDROMORPHONE [Concomitant]
     Active Substance: HYDROMORPHONE
     Indication: PAIN MANAGEMENT
     Dosage: FORM: DRIP, PERFUSION PUMP
     Route: 065
  2. PEGASYS [Suspect]
     Active Substance: PEGINTERFERON ALFA-2A
     Indication: PRODUCT USED FOR UNKNOWN INDICATION
     Dosage: MORE THAN A YEAR
     Route: 065

REACTIONS (2)
  - Nervous system disorder [Not Recovered/Not Resolved]
  - Inappropriate schedule of drug administration [Unknown]
